FAERS Safety Report 10735962 (Version 1)
Quarter: 2015Q1

REPORT INFORMATION
  Report Type: Spontaneous
  Country: US (occurrence: US)
  Receive Date: 20150126
  Receipt Date: 20150126
  Transmission Date: 20150721
  Serious: No
  Sender: FDA-Public Use
  Company Number: US-BIOGENIDEC-2015BI007493

PATIENT
  Age: 49 Year
  Sex: Female

DRUGS (6)
  1. LEVOTHYROXINE SODIUM. [Concomitant]
     Active Substance: LEVOTHYROXINE SODIUM
  2. PROPANOLOL HCL [Concomitant]
     Active Substance: PROPRANOLOL HYDROCHLORIDE
  3. BUTALBITAL-ACETAMINOPHEN [Concomitant]
  4. ZOVIA 1/35E (28) [Concomitant]
  5. TECFIDERA [Suspect]
     Active Substance: DIMETHYL FUMARATE
     Indication: MULTIPLE SCLEROSIS
     Route: 048
  6. ZYRTEC [Concomitant]
     Active Substance: CETIRIZINE HYDROCHLORIDE

REACTIONS (2)
  - Immunosuppression [Unknown]
  - Pharyngeal disorder [Unknown]
